FAERS Safety Report 5080669-1 (Version None)
Quarter: 2006Q3

REPORT INFORMATION
  Report Type: 
  Country: None (occurrence: None)
  Receive Date: 20060809
  Receipt Date: 20060801
  Transmission Date: 20061208
  Serious: Yes (Hospitalization)
  Sender: FDA-Public Use
  Company Number: GXKR2006PH04482

PATIENT
  Sex: Male

DRUGS (1)
  1. RIMSTAR (ETHAMBUTOL DIHYDROCHLORIDE, PYRAZINAMIDE, ISONIAZID, RIFAMPIC [Suspect]
     Indication: PULMONARY TUBERCULOSIS
     Dosage: ORAL
     Route: 048
     Dates: start: 20060610

REACTIONS (2)
  - PRURITUS [None]
  - RASH GENERALISED [None]
